FAERS Safety Report 4938647-6 (Version None)
Quarter: 2006Q1

REPORT INFORMATION
  Report Type: 
  Country: None (occurrence: None)
  Receive Date: 20060306
  Receipt Date: 20060217
  Transmission Date: 20060701
  Serious: Yes (Other)
  Sender: FDA-Public Use
  Company Number: TRP_0715_2006

PATIENT
  Age: 49 Year
  Sex: Female
  Weight: 85.2762 kg

DRUGS (3)
  1. RIBASPHERE [Suspect]
     Indication: HEPATITIS C
     Dosage: DF PO
     Route: 048
     Dates: start: 20050414, end: 20051201
  2. PEG-INTRON [Suspect]
     Indication: HEPATITIS C
     Dosage: DF SC
     Route: 058
     Dates: start: 20050414, end: 20051201
  3. CLARITIN [Concomitant]

REACTIONS (1)
  - BREAST CANCER FEMALE [None]
